FAERS Safety Report 14639406 (Version 1)
Quarter: 2018Q1

REPORT INFORMATION
  Report Type: Spontaneous
  Country: US (occurrence: US)
  Receive Date: 20180315
  Receipt Date: 20180315
  Transmission Date: 20180509
  Serious: Yes (Other)
  Sender: FDA-Public Use
  Company Number: US-AMGEN-USASP2018034748

PATIENT
  Age: 18 Year
  Sex: Female

DRUGS (11)
  1. IMETELSTAT [Concomitant]
     Active Substance: IMETELSTAT
     Indication: CHEMOTHERAPY
  2. CISPLATIN. [Concomitant]
     Active Substance: CISPLATIN
     Indication: CHEMOTHERAPY
  3. NECITUMUMAB [Concomitant]
     Active Substance: NECITUMUMAB
     Indication: CHEMOTHERAPY
  4. XGEVA [Suspect]
     Active Substance: DENOSUMAB
     Indication: CHEMOTHERAPY
     Route: 065
  5. LEUPROLIDE [Concomitant]
     Active Substance: LEUPROLIDE
     Indication: CHEMOTHERAPY
  6. XGEVA [Suspect]
     Active Substance: DENOSUMAB
     Indication: HEPATOCELLULAR CARCINOMA
  7. SORAFENIB [Concomitant]
     Active Substance: SORAFENIB
     Indication: CHEMOTHERAPY
  8. LETROZOLE. [Concomitant]
     Active Substance: LETROZOLE
     Indication: CHEMOTHERAPY
  9. TIVANTINIB [Concomitant]
     Active Substance: TIVANTINIB
     Indication: CHEMOTHERAPY
  10. GEMCITABINE [Concomitant]
     Active Substance: GEMCITABINE\GEMCITABINE HYDROCHLORIDE
     Indication: CHEMOTHERAPY
  11. EVEROLIMUS. [Concomitant]
     Active Substance: EVEROLIMUS
     Indication: CHEMOTHERAPY

REACTIONS (8)
  - Vomiting [Unknown]
  - Metastases to central nervous system [Unknown]
  - Metastasis [Unknown]
  - Headache [Unknown]
  - Nausea [Unknown]
  - Off label use [Unknown]
  - Lung disorder [Unknown]
  - Vision blurred [Unknown]
